FAERS Safety Report 4376697-1 (Version None)
Quarter: 2004Q2

REPORT INFORMATION
  Report Type: 
  Country: None (occurrence: None)
  Receive Date: 20040608
  Receipt Date: 20040524
  Transmission Date: 20050107
  Serious: Yes (Hospitalization)
  Sender: FDA-Public Use
  Company Number: 04H-163-0262271-00

PATIENT
  Age: 26 Year
  Sex: Female

DRUGS (1)
  1. LIPOSYN III 20% [Suspect]
     Indication: FLUID REPLACEMENT
     Dosage: 500 ML, EVERY 24 HOURS
     Dates: start: 20040423, end: 20040425

REACTIONS (4)
  - BACILLUS INFECTION [None]
  - BACTERAEMIA [None]
  - ENTEROBACTER INFECTION [None]
  - INFUSION RELATED REACTION [None]
